FAERS Safety Report 23053673 (Version 7)
Quarter: 2023Q4

REPORT INFORMATION
  Report Type: Spontaneous
  Country: US (occurrence: US)
  Receive Date: 20231011
  Receipt Date: 20231212
  Transmission Date: 20240110
  Serious: No
  Sender: FDA-Public Use
  Company Number: US-JNJFOC-20231012163

PATIENT
  Sex: Female

DRUGS (19)
  1. TREMFYA [Suspect]
     Active Substance: GUSELKUMAB
     Indication: Psoriasis
     Route: 065
     Dates: start: 20230902
  2. TREMFYA [Suspect]
     Active Substance: GUSELKUMAB
     Indication: Hidradenitis
  3. TREMFYA [Suspect]
     Active Substance: GUSELKUMAB
     Indication: Arthritis
  4. VITAMINS NOS [Concomitant]
     Active Substance: VITAMINS
  5. RAMIPRIL [Concomitant]
     Active Substance: RAMIPRIL
  6. IRON [Concomitant]
     Active Substance: IRON
  7. ESTRADIOL [Concomitant]
     Active Substance: ESTRADIOL
  8. ZINC [Concomitant]
     Active Substance: PYRITHIONE ZINC\ZINC\ZINC CHLORIDE
  9. HERBALS\TURMERIC [Concomitant]
     Active Substance: HERBALS\TURMERIC
  10. ISOTRETINOIN [Concomitant]
     Active Substance: ISOTRETINOIN
  11. VITAMIN D3 [Concomitant]
     Active Substance: CHOLECALCIFEROL
  12. KRILL OIL [Concomitant]
     Active Substance: DIETARY SUPPLEMENT\KRILL OIL
  13. MAGNESIUM [Concomitant]
     Active Substance: MAGNESIUM
  14. HYDROXYZINE PAMOATE [Concomitant]
     Active Substance: HYDROXYZINE PAMOATE
  15. IBUPROFEN [Concomitant]
     Active Substance: IBUPROFEN
  16. PRAVASTATIN [Concomitant]
     Active Substance: PRAVASTATIN
  17. CLINDAMYCIN [Concomitant]
     Active Substance: CLINDAMYCIN
  18. CLOBETASOL [Concomitant]
     Active Substance: CLOBETASOL
  19. .ALPHA.-TOCOPHEROL [Concomitant]
     Active Substance: .ALPHA.-TOCOPHEROL

REACTIONS (10)
  - Product dose omission issue [Unknown]
  - Device malfunction [Unknown]
  - Therapeutic product ineffective [Unknown]
  - Device failure [Unknown]
  - Product label issue [Unknown]
  - Skin laceration [Not Recovered/Not Resolved]
  - Skin fragility [Not Recovered/Not Resolved]
  - Skin atrophy [Not Recovered/Not Resolved]
  - Chapped lips [Not Recovered/Not Resolved]
  - Wound [Not Recovered/Not Resolved]

NARRATIVE: CASE EVENT DATE: 20230930
